FAERS Safety Report 20543673 (Version 1)
Quarter: 2022Q1

REPORT INFORMATION
  Report Type: Spontaneous
  Country: US (occurrence: US)
  Receive Date: 20220302
  Receipt Date: 20220302
  Transmission Date: 20220423
  Serious: Yes (Death, Other)
  Sender: FDA-Public Use
  Company Number: US-AMGEN-USASP2022036292

PATIENT

DRUGS (1)
  1. CARFILZOMIB [Suspect]
     Active Substance: CARFILZOMIB
     Indication: Plasma cell myeloma
     Dosage: UNK
     Route: 065

REACTIONS (9)
  - Death [Fatal]
  - Mucosal inflammation [Unknown]
  - Basosquamous carcinoma [Unknown]
  - Myelodysplastic syndrome [Unknown]
  - Gastric cancer [Unknown]
  - Prostate cancer [Unknown]
  - Plasma cell myeloma [Unknown]
  - Therapy partial responder [Unknown]
  - Platelet disorder [Unknown]
